FAERS Safety Report 7225455-9 (Version None)
Quarter: 2011Q1

REPORT INFORMATION
  Report Type: 
  Country: None (occurrence: None)
  Receive Date: 20110113
  Receipt Date: 20110112
  Transmission Date: 20110831
  Serious: No
  Sender: FDA-Public Use
  Company Number: US-PFIZER INC-2011008043

PATIENT
  Sex: Female
  Weight: 68 kg

DRUGS (5)
  1. MULTIVITAMIN [Concomitant]
     Dosage: UNK
     Route: 048
  2. ZOCOR [Suspect]
     Indication: BLOOD CHOLESTEROL INCREASED
     Dosage: 20 MG, 1X/DAY
     Route: 048
     Dates: start: 20070101, end: 20070101
  3. LIPITOR [Suspect]
     Indication: LOW DENSITY LIPOPROTEIN INCREASED
  4. ZOCOR [Suspect]
     Indication: LOW DENSITY LIPOPROTEIN INCREASED
  5. LIPITOR [Suspect]
     Indication: BLOOD CHOLESTEROL INCREASED
     Dosage: 20 MG, 1X/DAY
     Route: 048
     Dates: end: 20110111

REACTIONS (2)
  - HAIR TEXTURE ABNORMAL [None]
  - ALOPECIA [None]
